FAERS Safety Report 23764311 (Version 2)
Quarter: 2024Q2

REPORT INFORMATION
  Report Type: Spontaneous
  Country: US (occurrence: US)
  Receive Date: 20240420
  Receipt Date: 20240422
  Transmission Date: 20240716
  Serious: Yes (Other)
  Sender: FDA-Public Use
  Company Number: US-BRISTOL-MYERS SQUIBB COMPANY-2024-060401

PATIENT
  Age: 72 Year
  Sex: Male
  Weight: 83.91 kg

DRUGS (4)
  1. OPDIVO [Suspect]
     Active Substance: NIVOLUMAB
     Indication: Malignant melanoma
     Route: 042
     Dates: start: 2022
  2. OPDIVO [Suspect]
     Active Substance: NIVOLUMAB
     Dosage: SINGLE AGENT
  3. YERVOY [Suspect]
     Active Substance: IPILIMUMAB
     Indication: Malignant melanoma
     Dosage: 4 DOSES OF YERVOY
     Route: 042
     Dates: start: 2022
  4. ASPIRIN [Concomitant]
     Active Substance: ASPIRIN
     Indication: Product used for unknown indication

REACTIONS (4)
  - Rash pruritic [Not Recovered/Not Resolved]
  - Salivary hyposecretion [Unknown]
  - Dry mouth [Unknown]
  - Hypothyroidism [Unknown]
